FAERS Safety Report 4355200-6 (Version None)
Quarter: 2004Q2

REPORT INFORMATION
  Report Type: 
  Country: None (occurrence: None)
  Receive Date: 20040504
  Receipt Date: 20040423
  Transmission Date: 20050107
  Serious: Yes (Disabling, Other)
  Sender: FDA-Public Use
  Company Number: US-JNJFOC-20040405331

PATIENT
  Age: 35 Year
  Sex: Female
  Weight: 73.4827 kg

DRUGS (5)
  1. REMICADE [Suspect]
     Indication: RHEUMATOID ARTHRITIS
     Dosage: INTRAVENOUS
     Route: 042
     Dates: start: 20040414
  2. METHOTREXATE [Suspect]
     Dosage: INJECTION
     Dates: start: 20040416
  3. PREDNISONE [Concomitant]
  4. PERCOSET (OXYCOCET) [Concomitant]
  5. LORTAB (VICODIN) TABLETS [Concomitant]

REACTIONS (3)
  - JOINT STIFFNESS [None]
  - JOINT SWELLING [None]
  - WHEELCHAIR USER [None]
